FAERS Safety Report 7727730-8 (Version None)
Quarter: 2011Q3

REPORT INFORMATION
  Report Type: 
  Country: None (occurrence: None)
  Receive Date: 20110902
  Receipt Date: 20110823
  Transmission Date: 20111222
  Serious: Yes (Hospitalization)
  Sender: FDA-Public Use
  Company Number: FR-B.I. PHARMACEUTICALS,INC./RIDGEFIELD-2011-FF-00784FF

PATIENT
  Sex: Female

DRUGS (3)
  1. PRAMIPEXOLE DIHYDROCHLORIDE [Suspect]
     Dosage: 2.1 MG
     Route: 048
  2. PAROXETINE HCL [Concomitant]
  3. MODOPAR 125 [Concomitant]
     Dosage: 100 MG/25 MG X 3 DAILY

REACTIONS (4)
  - FEEDING DISORDER [None]
  - WEIGHT INCREASED [None]
  - COMPULSIVE SHOPPING [None]
  - COMPULSIVE SEXUAL BEHAVIOUR [None]
